FAERS Safety Report 24728078 (Version 2)
Quarter: 2024Q4

REPORT INFORMATION
  Report Type: Spontaneous
  Country: US (occurrence: US)
  Receive Date: 20241212
  Receipt Date: 20241226
  Transmission Date: 20250115
  Serious: Yes (Hospitalization)
  Sender: ELI LILLY AND COMPANY
  Company Number: US-ELI_LILLY_AND_COMPANY-US202412005111

PATIENT
  Age: 74 Year
  Sex: Female

DRUGS (7)
  1. BASAGLAR [Suspect]
     Active Substance: INSULIN GLARGINE
     Indication: Product used for unknown indication
     Dosage: 8 U, UNKNOWN
     Route: 058
     Dates: start: 20230618
  2. BASAGLAR [Suspect]
     Active Substance: INSULIN GLARGINE
     Dosage: 8 U, UNKNOWN
     Route: 058
  3. BASAGLAR [Suspect]
     Active Substance: INSULIN GLARGINE
     Dosage: 8 U, UNKNOWN
     Route: 058
  4. BASAGLAR [Suspect]
     Active Substance: INSULIN GLARGINE
     Dosage: 7 U, UNKNOWN
     Route: 058
  5. BASAGLAR [Suspect]
     Active Substance: INSULIN GLARGINE
     Dosage: 7 U, UNKNOWN
     Route: 058
  6. METFORMIN [Concomitant]
     Active Substance: METFORMIN HYDROCHLORIDE
     Indication: Product used for unknown indication
  7. FIASP [Concomitant]
     Active Substance: INSULIN ASPART
     Indication: Product used for unknown indication
     Dosage: UNK

REACTIONS (19)
  - Hypertension [Recovered/Resolved]
  - Diplopia [Recovering/Resolving]
  - Contusion [Unknown]
  - Injection site pain [Unknown]
  - Weight increased [Unknown]
  - Malaise [Unknown]
  - Vision blurred [Unknown]
  - Blood glucose increased [Unknown]
  - Injection site bruising [Unknown]
  - Somnolence [Unknown]
  - Insomnia [Unknown]
  - Abdominal distension [Unknown]
  - Asthenia [Unknown]
  - Muscle spasms [Unknown]
  - Dehydration [Unknown]
  - Glycosylated haemoglobin increased [Unknown]
  - Obsessive-compulsive disorder [Unknown]
  - Illness [Unknown]
  - Balance disorder [Unknown]

NARRATIVE: CASE EVENT DATE: 20240921
